FAERS Safety Report 11223193 (Version 1)
Quarter: 2015Q2

REPORT INFORMATION
  Report Type: Report from Study
  Country: SE (occurrence: SE)
  Receive Date: 20150626
  Receipt Date: 20150626
  Transmission Date: 20150821
  Serious: Yes (Hospitalization)
  Sender: FDA-Public Use
  Company Number: SE-BRISTOL-MYERS SQUIBB COMPANY-BMS-2015-040879

PATIENT
  Age: 63 Year
  Sex: Female

DRUGS (13)
  1. BLINDED ABATACEPT [Suspect]
     Active Substance: ABATACEPT
     Indication: RHEUMATOID ARTHRITIS
     Dosage: UNK
     Route: 058
     Dates: start: 20140219
  2. METHOTREXATE [Concomitant]
     Active Substance: METHOTREXATE
     Indication: RHEUMATOID ARTHRITIS
     Dosage: 2.5 MG, UNK
     Route: 065
     Dates: start: 20140219
  3. MADOPARK [Concomitant]
     Indication: PRODUCT USED FOR UNKNOWN INDICATION
     Dosage: 1 DF, TID
     Route: 065
     Dates: start: 20130705
  4. PROPAVAN [Concomitant]
     Active Substance: PROPIOMAZINE
     Indication: SOMNOLENCE
     Dosage: 25 MG, PRN
     Route: 065
     Dates: start: 20141117
  5. SOBRIL [Concomitant]
     Active Substance: OXAZEPAM
     Indication: ANXIETY
     Dosage: 10 MG, PRN
     Route: 065
     Dates: start: 20130719
  6. OXYCODONE [Concomitant]
     Active Substance: OXYCODONE
     Indication: PRODUCT USED FOR UNKNOWN INDICATION
     Dosage: 5 MG, BID
     Route: 065
     Dates: start: 20150605
  7. DICLOFENAC MYLAN [Concomitant]
     Indication: PAIN
     Dosage: 50 MG, PRN
     Route: 065
     Dates: start: 20140212
  8. FOLACIN                            /00024201/ [Concomitant]
     Active Substance: FOLIC ACID
     Indication: MYALGIA
     Dosage: 5 MG, Q2WK
     Route: 065
     Dates: start: 20140219
  9. NAPROXEN ORIFARM [Concomitant]
     Indication: ARTHRALGIA
  10. FLUOXETINE [Concomitant]
     Active Substance: FLUOXETINE\FLUOXETINE HYDROCHLORIDE
     Indication: PRODUCT USED FOR UNKNOWN INDICATION
     Dosage: 20 MG, BID
     Route: 065
     Dates: start: 20130705
  11. ATARAX [Concomitant]
     Active Substance: HYDROXYZINE\HYDROXYZINE HYDROCHLORIDE
     Indication: ANXIETY
     Dosage: 25 MG, PRN
     Route: 065
     Dates: start: 20140314
  12. FOLACIN                            /00024201/ [Concomitant]
     Active Substance: FOLIC ACID
     Indication: ARTHRALGIA
  13. NAPROXEN ORIFARM [Concomitant]
     Indication: MYALGIA
     Dosage: 500 MG, QD
     Route: 065
     Dates: start: 20150525

REACTIONS (2)
  - Ankle fracture [Unknown]
  - Fall [Unknown]

NARRATIVE: CASE EVENT DATE: 20150604
